FAERS Safety Report 24140347 (Version 1)
Quarter: 2024Q3

REPORT INFORMATION
  Report Type: Report from Study
  Country: JP (occurrence: JP)
  Receive Date: 20240726
  Receipt Date: 20240726
  Transmission Date: 20241016
  Serious: Yes (Hospitalization, Other)
  Sender: COLLEGIUM PHARMACEUTICAL
  Company Number: JP-ASTRAZENECA-240053691_011620_P_1

PATIENT
  Sex: Female

DRUGS (9)
  1. SYMPROIC [Suspect]
     Active Substance: NALDEMEDINE
     Indication: Cancer pain
     Dosage: 0.2 MG, QD
     Route: 048
     Dates: start: 20210902, end: 20230808
  2. DEXAMETHASONE [Suspect]
     Active Substance: DEXAMETHASONE
     Indication: Cancer pain
     Dosage: 10 MG, QD
     Route: 048
     Dates: start: 20210902, end: 20211031
  3. HYDROMORPHONE HYDROCHLORIDE [Suspect]
     Active Substance: HYDROMORPHONE HYDROCHLORIDE
     Indication: Cancer pain
     Dosage: 2 MG, QD
     Route: 048
     Dates: start: 20210902, end: 20230724
  4. DENOSUMAB [Suspect]
     Active Substance: DENOSUMAB
     Indication: Product used for unknown indication
     Dosage: 120 MILLIGRAM/MONTH
     Route: 058
     Dates: start: 201902, end: 20230713
  5. DENOSUMAB [Suspect]
     Active Substance: DENOSUMAB
     Dosage: UNK, UNKNOWN
     Route: 048
     Dates: start: 201902, end: 20230801
  6. FASLODEX [Suspect]
     Active Substance: FULVESTRANT
     Indication: Breast cancer
     Dosage: UNK, UNKNOWN
     Route: 065
  7. OLANZAPINE [Suspect]
     Active Substance: OLANZAPINE
     Indication: Cancer pain
     Dosage: 2.5 MG, QD
     Route: 048
     Dates: start: 20210902, end: 20220710
  8. OLAPARIB [Suspect]
     Active Substance: OLAPARIB
     Indication: Breast cancer
     Dosage: 300 MILLIGRAM/DOSE
     Route: 048
     Dates: start: 20210907, end: 20211025
  9. LAFUTIDINE [Suspect]
     Active Substance: LAFUTIDINE
     Indication: Cancer pain
     Dosage: 10 MG, QD
     Route: 048
     Dates: start: 20210902, end: 20220310

REACTIONS (2)
  - Pneumonitis [Recovered/Resolved]
  - Anaemia [Recovered/Resolved]

NARRATIVE: CASE EVENT DATE: 20211025
